FAERS Safety Report 6468523-1 (Version None)
Quarter: 2009Q4

REPORT INFORMATION
  Report Type: 
  Country: None (occurrence: None)
  Receive Date: 20091203
  Receipt Date: 20091130
  Transmission Date: 20100525
  Serious: Yes (Death)
  Sender: FDA-Public Use
  Company Number: US-JNJFOC-20091200529

PATIENT
  Sex: Female
  Weight: 72.58 kg

DRUGS (3)
  1. DURAGESIC-100 [Suspect]
     Indication: NERVE INJURY
     Route: 062
  2. PROZAC [Concomitant]
     Route: 048
  3. NEURONTIN [Concomitant]
     Indication: NEUROPATHY PERIPHERAL
     Route: 048

REACTIONS (2)
  - ACCIDENTAL OVERDOSE [None]
  - MALAISE [None]
